FAERS Safety Report 7725786-X (Version None)
Quarter: 2011Q3

REPORT INFORMATION
  Report Type: 
  Country: None (occurrence: None)
  Receive Date: 20110902
  Receipt Date: 20110826
  Transmission Date: 20111222
  Serious: Yes (Hospitalization)
  Sender: FDA-Public Use
  Company Number: US-BRISTOL-MYERS SQUIBB COMPANY-16011587

PATIENT
  Age: 20 Month
  Sex: Female

DRUGS (1)
  1. ABILIFY [Suspect]
     Dosage: CAPS.

REACTIONS (6)
  - DROOLING [None]
  - SOMNOLENCE [None]
  - LOSS OF CONSCIOUSNESS [None]
  - DYSKINESIA [None]
  - TREMOR [None]
  - ACCIDENTAL OVERDOSE [None]
